FAERS Safety Report 4337136-X (Version None)
Quarter: 2004Q2

REPORT INFORMATION
  Report Type: 
  Country: None (occurrence: None)
  Receive Date: 20040408
  Receipt Date: 20040325
  Transmission Date: 20050107
  Serious: Yes (Hospitalization)
  Sender: FDA-Public Use
  Company Number: HQWYE172026MAR04

PATIENT
  Age: 46 Year
  Sex: Female

DRUGS (6)
  1. SERAX [Suspect]
     Dosage: 75 MG 1X PER 1 DAY
  2. CLOZAPINE [Suspect]
     Dosage: INCREASED IN INCREMENTS OF 12.5 MG A DAY; SEE IMAGE
  3. DIAZEPAM [Suspect]
     Dosage: 2 MG 3X PER 1 DAY
  4. HALOPERIDOL [Concomitant]
  5. IBUPROFEN [Concomitant]
  6. PANTOZOL (PANTOPRAZOLE) [Concomitant]

REACTIONS (12)
  - BLOOD PRESSURE INCREASED [None]
  - BRADYCARDIA [None]
  - COLD SWEAT [None]
  - COMA [None]
  - DRUG INTERACTION [None]
  - DRUG TOXICITY [None]
  - HYPERSOMNIA [None]
  - MIOSIS [None]
  - MUSCULAR WEAKNESS [None]
  - PALLOR [None]
  - PULSE PRESSURE INCREASED [None]
  - SALIVARY HYPERSECRETION [None]
